FAERS Safety Report 16405874 (Version 1)
Quarter: 2019Q2

REPORT INFORMATION
  Report Type: Spontaneous
  Country: AR (occurrence: AR)
  Receive Date: 20190607
  Receipt Date: 20190607
  Transmission Date: 20190711
  Serious: Yes (Other)
  Sender: FDA-Public Use
  Company Number: AR-WHANIN PHARM. CO., LTD.-2019M1052430

PATIENT
  Age: 42 Year
  Sex: Female

DRUGS (2)
  1. LAPENAX [Suspect]
     Active Substance: CLOZAPINE
     Indication: SCHIZOPHRENIA
     Dosage: UNK
     Dates: start: 19970611
  2. LAPENAX [Suspect]
     Active Substance: CLOZAPINE
     Dosage: UNK
     Dates: start: 2019

REACTIONS (6)
  - Full blood count abnormal [Unknown]
  - Insomnia [Unknown]
  - Intentional product misuse [Unknown]
  - Neutrophil count decreased [Not Recovered/Not Resolved]
  - Intentional self-injury [Unknown]
  - Nasopharyngitis [Unknown]

NARRATIVE: CASE EVENT DATE: 2019
